FAERS Safety Report 8779288 (Version 2)
Quarter: 2012Q4

REPORT INFORMATION
  Report Type: 
  Country: BR (occurrence: BR)
  Receive Date: 20120911
  Receipt Date: 20121004
  Transmission Date: 20130627
  Serious: Yes (Hospitalization)
  Sender: FDA-Public Use
  Company Number: BR-ELI_LILLY_AND_COMPANY-BR201209000746

PATIENT
  Age: 28 Year
  Sex: Female
  Weight: 63 kg

DRUGS (2)
  1. HUMALOG LISPRO [Suspect]
     Dosage: 1 IU, unknown
     Route: 058
     Dates: start: 201208
  2. LANTUS [Concomitant]
     Dosage: UNK, unknown
     Route: 065

REACTIONS (5)
  - Hypertension [Unknown]
  - Nephropathy [Unknown]
  - Diabetes mellitus [Unknown]
  - Blood glucose fluctuation [Unknown]
  - Infection [Unknown]
